FAERS Safety Report 8062699-0 (Version None)
Quarter: 2011Q4

REPORT INFORMATION
  Report Type: 
  Country: None (occurrence: None)
  Receive Date: 20111220
  Receipt Date: 20110802
  Transmission Date: 20120403
  Serious: Yes (Other)
  Sender: FDA-Public Use
  Company Number: PHHY2011US41488

PATIENT
  Sex: Female

DRUGS (4)
  1. MYFORTIC [Suspect]
     Indication: COMPLICATIONS OF TRANSPLANTED KIDNEY
     Dosage: 720 MG, BID, ORAL
     Route: 048
     Dates: start: 20101227
  2. MYFORTIC [Suspect]
     Indication: SYSTEMIC LUPUS ERYTHEMATOSUS
     Dosage: 720 MG, BID, ORAL
     Route: 048
     Dates: start: 20101227
  3. MYFORTIC [Suspect]
     Indication: BENIGN NEOPLASM OF ADRENAL GLAND
     Dosage: 720 MG, BID, ORAL
     Route: 048
     Dates: start: 20101227
  4. PROGRAF [Concomitant]

REACTIONS (1)
  - KIDNEY TRANSPLANT REJECTION [None]
